FAERS Safety Report 5304955-2 (Version None)
Quarter: 2007Q2

REPORT INFORMATION
  Report Type: 
  Country: None (occurrence: None)
  Receive Date: 20070416
  Receipt Date: 20070402
  Transmission Date: 20071010
  Serious: Yes (Hospitalization)
  Sender: FDA-Public Use
  Company Number: 2007SP006051

PATIENT
  Age: 66 Year
  Sex: Female
  Weight: 47.3 kg

DRUGS (3)
  1. TEMOZOLOMIDE (S-P) [Suspect]
     Indication: GLIOBLASTOMA MULTIFORME
     Dosage: 75 MG/M2; PO, 65 MG/M2; PO
     Route: 048
     Dates: start: 20061228, end: 20070215
  2. TEMOZOLOMIDE (S-P) [Suspect]
     Indication: GLIOBLASTOMA MULTIFORME
     Dosage: 75 MG/M2; PO, 65 MG/M2; PO
     Route: 048
     Dates: end: 20070313
  3. PRIMAXIN [Suspect]
     Indication: DRUG USE FOR UNKNOWN INDICATION

REACTIONS (7)
  - DRUG HYPERSENSITIVITY [None]
  - HYPOTENSION [None]
  - HYPOXIA [None]
  - LYMPHOPENIA [None]
  - PNEUMONIA [None]
  - SEPSIS [None]
  - SINUSITIS [None]
